FAERS Safety Report 7803040-5 (Version None)
Quarter: 2011Q4

REPORT INFORMATION
  Report Type: 
  Country: None (occurrence: None)
  Receive Date: 20111007
  Receipt Date: 20110929
  Transmission Date: 20120403
  Serious: Yes (Hospitalization)
  Sender: FDA-Public Use
  Company Number: JP-ACTELION-A-CH2011-54810

PATIENT
  Sex: Female
  Weight: 58 kg

DRUGS (8)
  1. PREDNISOLONE [Concomitant]
  2. NIZATIDINE [Concomitant]
  3. SPIRONOLACTONE [Concomitant]
  4. NIPRADOLOL [Concomitant]
  5. URSODIOL [Concomitant]
  6. FUROSEMIDE [Concomitant]
  7. TRACLEER [Suspect]
     Indication: PULMONARY ARTERIAL HYPERTENSION
     Dosage: 62.5 MG, BID
     Route: 048
     Dates: start: 20090518, end: 20090622
  8. SILDENAFIL CITRATE [Concomitant]

REACTIONS (1)
  - BILIARY CIRRHOSIS PRIMARY [None]
